FAERS Safety Report 20255432 (Version 4)
Quarter: 2022Q1

REPORT INFORMATION
  Report Type: Report from Study
  Country: DE (occurrence: DE)
  Receive Date: 20211230
  Receipt Date: 20220124
  Transmission Date: 20220423
  Serious: Yes (Hospitalization)
  Sender: FDA-Public Use
  Company Number: DE-CELGENE-DEU-20211208375

PATIENT
  Age: 68 Year
  Sex: Female
  Weight: 50 kg

DRUGS (5)
  1. ABRAXANE [Suspect]
     Active Substance: PACLITAXEL
     Indication: Ductal adenocarcinoma of pancreas
     Dosage: 19  MILLIGRAM
     Route: 041
     Dates: start: 20201102, end: 20210112
  2. GEMCITABINE [Suspect]
     Active Substance: GEMCITABINE
     Indication: Ductal adenocarcinoma of pancreas
     Dosage: 15 MILLIGRAM
     Route: 065
     Dates: start: 20201102, end: 20210112
  3. DURVALUMAB [Suspect]
     Active Substance: DURVALUMAB
     Indication: Ductal adenocarcinoma of pancreas
     Dosage: 15 MILLIGRAM
     Route: 065
     Dates: start: 20210204, end: 20211214
  4. LENALIDOMIDE [Suspect]
     Active Substance: LENALIDOMIDE
     Indication: Ductal adenocarcinoma of pancreas
     Dosage: 10 MILLIGRAM
     Route: 048
     Dates: start: 20210205, end: 20211224
  5. LENALIDOMIDE [Suspect]
     Active Substance: LENALIDOMIDE
     Dosage: 10 MILLIGRAM
     Route: 048
     Dates: start: 20210205, end: 20211225

REACTIONS (1)
  - Diarrhoea [Recovered/Resolved]

NARRATIVE: CASE EVENT DATE: 20211225
